FAERS Safety Report 5094067-8 (Version None)
Quarter: 2006Q3

REPORT INFORMATION
  Report Type: 
  Country: None (occurrence: None)
  Receive Date: 20060831
  Receipt Date: 20060602
  Transmission Date: 20061208
  Serious: Yes (Life-Threatening, Hospitalization, Disabling)
  Sender: FDA-Public Use
  Company Number: IL-ROCHE-453198

PATIENT
  Age: 64 Year
  Sex: Female

DRUGS (2)
  1. GANCICLOVIR SODIUM [Suspect]
     Indication: INFECTION IN AN IMMUNOCOMPROMISED HOST
     Dosage: FORMULATION REPORTED AS: VIAL. ADMINISTERED EVERY 12 H.
     Route: 042
     Dates: start: 20060606, end: 20060607
  2. ANTIBIOTIC NOS [Concomitant]
     Dosage: EMPIRICAL BROAD-SPECTRUM ANTIBIOTIC DRUG FOR FEVER OF UNKNOWN ORIGIN.
     Dates: start: 20060521, end: 20060606

REACTIONS (6)
  - ANOXIC ENCEPHALOPATHY [None]
  - CARDIAC ARREST [None]
  - HIV TEST POSITIVE [None]
  - RESPIRATORY ARREST [None]
  - VENTRICULAR DYSFUNCTION [None]
  - VENTRICULAR TACHYCARDIA [None]
